FAERS Safety Report 7035991-6 (Version None)
Quarter: 2010Q4

REPORT INFORMATION
  Report Type: 
  Country: None (occurrence: None)
  Receive Date: 20101008
  Receipt Date: 20101005
  Transmission Date: 20110411
  Serious: Yes (Death, Hospitalization)
  Sender: FDA-Public Use
  Company Number: JP-BAYER-201014815BYL

PATIENT
  Age: 71 Year
  Sex: Male

DRUGS (14)
  1. NEXAVAR [Suspect]
     Indication: HEPATIC NEOPLASM MALIGNANT
     Dosage: TOTAL DAILY DOSE: 800 MG  UNIT DOSE: 200 MG
     Route: 048
     Dates: start: 20100812, end: 20100831
  2. NEXAVAR [Suspect]
     Dosage: TOTAL DAILY DOSE: 400 MG  UNIT DOSE: 200 MG
     Route: 048
     Dates: start: 20100901, end: 20100907
  3. NEXAVAR [Suspect]
     Dosage: TOTAL DAILY DOSE: 800 MG  UNIT DOSE: 200 MG
     Route: 048
     Dates: start: 20100908, end: 20100922
  4. URSO 250 [Concomitant]
     Indication: HEPATIC CIRRHOSIS
     Dosage: TOTAL DAILY DOSE: 300 MG
     Route: 065
     Dates: start: 20091101, end: 20100924
  5. LIVACT [Concomitant]
     Indication: HEPATIC CIRRHOSIS
     Dosage: TOTAL DAILY DOSE: 12.45 G
     Route: 065
     Dates: start: 20091101, end: 20100924
  6. GASTER [Concomitant]
     Indication: GASTRIC ULCER
     Dosage: TOTAL DAILY DOSE: 40 MG
     Route: 065
     Dates: start: 20091101, end: 20100923
  7. LASIX [Concomitant]
     Indication: ASCITES
     Dosage: TOTAL DAILY DOSE: 20 MG
     Route: 065
     Dates: start: 20091101, end: 20100922
  8. ALDACTONE [Concomitant]
     Indication: ASCITES
     Dosage: TOTAL DAILY DOSE: 25 MG
     Route: 065
     Dates: start: 20091101, end: 20100923
  9. ALESION [Concomitant]
     Indication: PRURITUS
     Route: 065
     Dates: start: 20100715, end: 20100901
  10. MYSER [Concomitant]
     Indication: PRURITUS
     Route: 065
     Dates: start: 20100915, end: 20100923
  11. KERATINAMIN [Concomitant]
     Indication: PROPHYLAXIS
     Dosage: AS REQURIED
     Route: 065
     Dates: start: 20100812, end: 20100923
  12. SHAKUYAKUKANZOUTOU [Concomitant]
     Indication: TONIC CONVULSION
     Route: 065
     Dates: start: 20100908, end: 20100923
  13. OMEPRAZOLE [Concomitant]
     Indication: PROPHYLAXIS AGAINST GASTROINTESTINAL ULCER
     Dosage: TOTAL DAILY DOSE: 40 MG
     Route: 065
     Dates: start: 20091101, end: 20100924
  14. CYCLOSERINE [Concomitant]
     Indication: PRURITUS
     Dosage: AS REQUIRED
     Route: 065
     Dates: start: 20100715, end: 20100923

REACTIONS (1)
  - LOSS OF CONSCIOUSNESS [None]
